FAERS Safety Report 7249453-4 (Version None)
Quarter: 2011Q1

REPORT INFORMATION
  Report Type: 
  Country: None (occurrence: None)
  Receive Date: 20110128
  Receipt Date: 20101206
  Transmission Date: 20110831
  Serious: Yes (Hospitalization)
  Sender: FDA-Public Use
  Company Number: US-BAYER-201026670NA

PATIENT
  Sex: Female
  Weight: 68 kg

DRUGS (6)
  1. YAZ [Suspect]
     Indication: CONTRACEPTION
     Dosage: 1 DF (DAILY DOSE), , ORAL
     Route: 048
     Dates: start: 20080601, end: 20080615
  2. UNCODEABLE ^UNCLASSIFIABLE^ [Concomitant]
  3. PRENATAL /02195401/ [Concomitant]
  4. MOTRIN [Concomitant]
     Dates: start: 20080401
  5. POTASSIUM [Concomitant]
  6. UNCODEABLE ^UNCLASSIFIABLE^ [Concomitant]

REACTIONS (6)
  - ABDOMINAL PAIN UPPER [None]
  - CHOLELITHIASIS [None]
  - GALLBLADDER CHOLESTEROLOSIS [None]
  - BILIARY COLIC [None]
  - CHOLECYSTITIS ACUTE [None]
  - ABDOMINAL PAIN [None]
